FAERS Safety Report 16437988 (Version 1)
Quarter: 2019Q2

REPORT INFORMATION
  Report Type: Report from Study
  Country: US (occurrence: US)
  Receive Date: 20190617
  Receipt Date: 20190617
  Transmission Date: 20190711
  Serious: Yes (Other)
  Sender: FDA-Public Use
  Company Number: US-AMGEN-USASP2019093403

PATIENT
  Age: 76 Year
  Sex: Female

DRUGS (3)
  1. PROLIA [Suspect]
     Active Substance: DENOSUMAB
     Indication: OSTEOPOROSIS
     Dosage: UNK
     Route: 065
     Dates: start: 2016
  2. TAMOXIFEN [Concomitant]
     Active Substance: TAMOXIFEN
  3. VITAMIN D [Concomitant]
     Active Substance: VITAMIN D NOS
     Dosage: 1 DOSAGE FORM, QWK

REACTIONS (2)
  - Tooth extraction [Unknown]
  - Bone graft [Unknown]

NARRATIVE: CASE EVENT DATE: 201905
